FAERS Safety Report 9598515 (Version 1)
Quarter: 2013Q4

REPORT INFORMATION
  Report Type: Spontaneous
  Country: US (occurrence: US)
  Receive Date: 20131004
  Receipt Date: 20131004
  Transmission Date: 20140711
  Serious: No
  Sender: FDA-Public Use
  Company Number: US-AMGEN-USASP2013024120

PATIENT
  Age: 68 Year
  Sex: Female

DRUGS (15)
  1. ENBREL [Suspect]
     Indication: PSORIASIS
     Dosage: 50 MG, QWK
     Route: 058
  2. ENBREL [Suspect]
     Indication: PSORIATIC ARTHROPATHY
  3. LIPITOR [Concomitant]
     Dosage: 20 MG, UNK
  4. CLONAZEPAM [Concomitant]
     Dosage: 1 MG, UNK
  5. HYDROCHLOROTHIAZIDE [Concomitant]
     Dosage: 12.5 MG, UNK
  6. PREVACID [Concomitant]
     Dosage: 30 MG, UNK
  7. RESTORIL                           /00054301/ [Concomitant]
     Dosage: 30 MG, UNK
  8. MOBIC [Concomitant]
     Dosage: 15 MG, UNK
  9. MIRAPEX [Concomitant]
     Dosage: 1 MG, UNK
  10. FISH OIL [Concomitant]
     Dosage: UNK
  11. VITAMIN D                          /00107901/ [Concomitant]
     Dosage: 1000 UNIT, UNK
  12. PRESERVISION [Concomitant]
     Dosage: UNK
  13. TURMERIC                           /01079602/ [Concomitant]
     Dosage: 500 MG, UNK
  14. CALCIUM MAGNESIUM                  /01412301/ [Concomitant]
     Dosage: UNK
  15. ASPIRIN [Concomitant]
     Dosage: 81 MG, UNK

REACTIONS (4)
  - Drug effect incomplete [Unknown]
  - Platelet count decreased [Unknown]
  - Psoriasis [Unknown]
  - Psoriatic arthropathy [Unknown]
